FAERS Safety Report 25063362 (Version 1)
Quarter: 2025Q1

REPORT INFORMATION
  Report Type: Spontaneous
  Country: NO (occurrence: NO)
  Receive Date: 20250311
  Receipt Date: 20250311
  Transmission Date: 20250408
  Serious: Yes (Other)
  Sender: ROCHE
  Company Number: NO-ROCHE-10000227266

PATIENT
  Age: 60 Year

DRUGS (2)
  1. ALECTINIB [Suspect]
     Active Substance: ALECTINIB
     Indication: Non-small cell lung cancer
     Route: 065
     Dates: start: 202205, end: 202307
  2. BRIGATINIB [Concomitant]
     Active Substance: BRIGATINIB
     Dates: start: 202201, end: 202205

REACTIONS (1)
  - Disease progression [Unknown]
